FAERS Safety Report 7237639-4 (Version None)
Quarter: 2011Q1

REPORT INFORMATION
  Report Type: 
  Country: None (occurrence: None)
  Receive Date: 20110118
  Receipt Date: 20110105
  Transmission Date: 20110831
  Serious: Yes (Other)
  Sender: FDA-Public Use
  Company Number: 024945

PATIENT
  Sex: Female
  Weight: 43.9989 kg

DRUGS (15)
  1. CIMZIA [Suspect]
     Indication: CROHN'S DISEASE
     Dosage: (400 MG 1X/2 WEEKS SUBCUTANEOUS) (400 MG 1X/4WEEKS SUBCUTANEOUS) (400 MG 1X/2 WEEKS SUBCUTANEOUS) (2
     Route: 058
     Dates: start: 20091119, end: 20091217
  2. CIMZIA [Suspect]
     Indication: CROHN'S DISEASE
     Dosage: (400 MG 1X/2 WEEKS SUBCUTANEOUS) (400 MG 1X/4WEEKS SUBCUTANEOUS) (400 MG 1X/2 WEEKS SUBCUTANEOUS) (2
     Route: 058
     Dates: start: 20100114, end: 20100730
  3. CIMZIA [Suspect]
     Indication: CROHN'S DISEASE
     Dosage: (400 MG 1X/2 WEEKS SUBCUTANEOUS) (400 MG 1X/4WEEKS SUBCUTANEOUS) (400 MG 1X/2 WEEKS SUBCUTANEOUS) (2
     Route: 058
     Dates: start: 20100813, end: 20100827
  4. CIMZIA [Suspect]
     Indication: CROHN'S DISEASE
     Dosage: (400 MG 1X/2 WEEKS SUBCUTANEOUS) (400 MG 1X/4WEEKS SUBCUTANEOUS) (400 MG 1X/2 WEEKS SUBCUTANEOUS) (2
     Route: 058
     Dates: start: 20100909, end: 20101007
  5. FOLIC ACID [Concomitant]
  6. AMBIEN [Concomitant]
  7. CIPRO [Concomitant]
  8. VITAMIN B12 NOS [Concomitant]
  9. DAPSONE [Concomitant]
  10. METHOTREXATE [Concomitant]
  11. ATIVAN [Concomitant]
  12. PREDNISONE [Concomitant]
  13. BUDESONIDE [Concomitant]
  14. VITAMIN A [Concomitant]
  15. FLAGYL [Concomitant]

REACTIONS (1)
  - HERPES ZOSTER [None]
